FAERS Safety Report 7136338 (Version 4)
Quarter: 2018Q3

REPORT INFORMATION
  Report Type: Spontaneous
  Country: IT (occurrence: IT)
  Receive Date: 20091001
  Receipt Date: 20180824
  Transmission Date: 20181010
  Serious: Yes (Hospitalization)
  Sender: FDA-Public Use
  Company Number: IT-PFIZER INC-2009272081

PATIENT
  Age: 57 Year
  Sex: Male

DRUGS (2)
  1. SUTENT [Suspect]
     Active Substance: SUNITINIB MALATE
     Indication: RENAL CANCER
     Dosage: 50 MG, DAILY
     Route: 048
     Dates: start: 20081212, end: 20090820
  2. PARIET [Suspect]
     Active Substance: RABEPRAZOLE SODIUM
     Dosage: 1 DF, 1X/DAY
     Route: 048
     Dates: start: 20081224, end: 20091020

REACTIONS (3)
  - Arthralgia [Recovered/Resolved]
  - Thrombocytopenia [Recovered/Resolved]
  - Erythema multiforme [Recovered/Resolved]

NARRATIVE: CASE EVENT DATE: 20090610
